FAERS Safety Report 10264263 (Version 1)
Quarter: 2014Q2

REPORT INFORMATION
  Report Type: Spontaneous
  Country: US (occurrence: US)
  Receive Date: 20140627
  Receipt Date: 20140627
  Transmission Date: 20141212
  Serious: Yes (Hospitalization)
  Sender: FDA-Public Use
  Company Number: US-BEH-2014043398

PATIENT
  Sex: Male
  Weight: 21 kg

DRUGS (24)
  1. HIZENTRA [Suspect]
     Indication: ENCEPHALOPATHY
     Dosage: MULTIPLE SITES OVER 1-2 HOURS
     Route: 058
  2. HIZENTRA [Suspect]
     Indication: ENCEPHALOPATHY
     Dosage: MULTIPLE SITES OVER 1-2 HOURS
     Route: 058
  3. DIPHENHYDRAMINE [Concomitant]
  4. LIDOCAINE/PRILOCAINE [Concomitant]
  5. EPI PEN [Concomitant]
  6. LMX [Concomitant]
  7. ONDANSETRON [Concomitant]
  8. CETIRIZINE [Concomitant]
  9. ALBUTEROL [Concomitant]
  10. VIMPAT [Concomitant]
  11. NEXIUM [Concomitant]
  12. ZONISAMIDE [Concomitant]
  13. BANZEL [Concomitant]
  14. ACETAMINOPHEN [Concomitant]
  15. PULMICORT [Concomitant]
  16. CELONTIN [Concomitant]
  17. SULFAMETHOXAZOLE [Concomitant]
  18. LAMICTAL [Concomitant]
  19. DIASTAT [Concomitant]
  20. ACYCLOVIR [Concomitant]
  21. ZANAFLEX [Concomitant]
  22. FLINTSTONES [Concomitant]
  23. CHLORAL HYDRATE [Concomitant]
  24. TRANXENE [Concomitant]

REACTIONS (1)
  - Convulsion [Unknown]
